FAERS Safety Report 6564964-2 (Version None)
Quarter: 2010Q1

REPORT INFORMATION
  Report Type: 
  Country: None (occurrence: None)
  Receive Date: 20100201
  Receipt Date: 20100122
  Transmission Date: 20100710
  Serious: Yes (Other)
  Sender: FDA-Public Use
  Company Number: US-ASTRAZENECA-2010SE03096

PATIENT
  Age: 71 Year
  Sex: Female
  Weight: 68 kg

DRUGS (3)
  1. ARIMIDEX [Suspect]
     Indication: BREAST CANCER STAGE I
     Route: 048
     Dates: start: 20080801
  2. HYDROCHLOROTHIAZIDE [Concomitant]
  3. VITAMIN D [Concomitant]

REACTIONS (5)
  - BLISTER [None]
  - BONE PAIN [None]
  - DERMAL CYST [None]
  - SKIN PAPILLOMA [None]
  - SQUAMOUS CELL CARCINOMA [None]
